FAERS Safety Report 19808241 (Version 1)
Quarter: 2021Q3

REPORT INFORMATION
  Report Type: Spontaneous
  Country: US (occurrence: US)
  Receive Date: 20210909
  Receipt Date: 20210909
  Transmission Date: 20211014
  Serious: No
  Sender: FDA-Public Use
  Company Number: US-REGENERON PHARMACEUTICALS, INC.-2021-29906

PATIENT

DRUGS (10)
  1. PRALUENT [Suspect]
     Active Substance: ALIROCUMAB
     Dosage: 150 MG, Q2W
     Route: 058
     Dates: start: 2020
  2. TOUJEO [Concomitant]
     Active Substance: INSULIN GLARGINE
     Indication: PRODUCT USED FOR UNKNOWN INDICATION
  3. PRALUENT [Suspect]
     Active Substance: ALIROCUMAB
     Indication: HYPERCHOLESTEROLAEMIA
     Dosage: 75 MG, Q2W
     Route: 065
     Dates: start: 2020
  4. IRBESARTAN. [Concomitant]
     Active Substance: IRBESARTAN
     Indication: HYPERTENSION
  5. DOXEPIN [Concomitant]
     Active Substance: DOXEPIN
     Indication: ANXIETY
  6. OZEMPIC [Concomitant]
     Active Substance: SEMAGLUTIDE
     Indication: DIABETES MELLITUS
  7. ACIPHEX [Concomitant]
     Active Substance: RABEPRAZOLE SODIUM
     Indication: GASTROOESOPHAGEAL REFLUX DISEASE
  8. LOMOTIL                            /00384302/ [Concomitant]
     Active Substance: LOPERAMIDE HYDROCHLORIDE
     Indication: ABDOMINAL DISCOMFORT
  9. DOXEPIN [Concomitant]
     Active Substance: DOXEPIN
     Indication: DEPRESSION
  10. NOVOLOG [Concomitant]
     Active Substance: INSULIN ASPART
     Indication: DIABETES MELLITUS

REACTIONS (2)
  - Blood cholesterol increased [Unknown]
  - Pruritus [Recovered/Resolved]

NARRATIVE: CASE EVENT DATE: 2020
